FAERS Safety Report 26139883 (Version 1)
Quarter: 2025Q4

REPORT INFORMATION
  Report Type: Spontaneous
  Country: EU (occurrence: EU)
  Receive Date: 20251210
  Receipt Date: 20251210
  Transmission Date: 20260119
  Serious: Yes (Life-Threatening, Other)
  Sender: ADIENNE PHARMA & BIOTECH
  Company Number: None

PATIENT
  Age: 60 Year
  Sex: Female
  Weight: 72 kg

DRUGS (2)
  1. THIOTEPA [Suspect]
     Active Substance: THIOTEPA
     Indication: Surgical preconditioning
     Route: 042
     Dates: start: 20251004, end: 20251005
  2. CARMUSTINE [Suspect]
     Active Substance: CARMUSTINE
     Indication: Surgical preconditioning
     Route: 042
     Dates: start: 20251003, end: 20251003

REACTIONS (1)
  - Organising pneumonia [Not Recovered/Not Resolved]

NARRATIVE: CASE EVENT DATE: 20251018
